FAERS Safety Report 24776533 (Version 2)
Quarter: 2024Q4

REPORT INFORMATION
  Report Type: Spontaneous
  Country: US (occurrence: US)
  Receive Date: 20241226
  Receipt Date: 20241230
  Transmission Date: 20250114
  Serious: Yes (Hospitalization, Disabling)
  Sender: STRIDES
  Company Number: None

PATIENT

DRUGS (5)
  1. HYDROCORTISONE [Suspect]
     Active Substance: HYDROCORTISONE
     Indication: Immunosuppressant drug therapy
     Dosage: UNK, QD (DAILY)
     Route: 065
  2. HYDROCORTISONE [Suspect]
     Active Substance: HYDROCORTISONE
     Indication: Prophylaxis against transplant rejection
  3. TACROLIMUS [Suspect]
     Active Substance: TACROLIMUS
     Indication: Immunosuppressant drug therapy
     Dosage: UNK, QD (DAILY)
     Route: 065
  4. TACROLIMUS [Suspect]
     Active Substance: TACROLIMUS
     Indication: Prophylaxis against transplant rejection
  5. ZOLEDRONIC ACID [Concomitant]
     Active Substance: ZOLEDRONIC ACID
     Indication: Osteopenia
     Dosage: UNK (CONTINUED RECEIVING YEARLY INFUSION (ONCE A YEAR))
     Route: 065

REACTIONS (5)
  - Kyphosis [Recovered/Resolved]
  - Body height decreased [Recovered/Resolved]
  - Spinal fracture [Recovered/Resolved]
  - Osteoporotic fracture [Recovered/Resolved]
  - Osteoporosis [Recovered/Resolved]
